FAERS Safety Report 5288609-7 (Version None)
Quarter: 2007Q2

REPORT INFORMATION
  Report Type: 
  Country: None (occurrence: None)
  Receive Date: 20070405
  Receipt Date: 20070322
  Transmission Date: 20071010
  Serious: Yes (Hospitalization)
  Sender: FDA-Public Use
  Company Number: NL-GENENTECH-237577

PATIENT
  Sex: Male

DRUGS (5)
  1. BEVACIZUMAB [Suspect]
     Indication: COLORECTAL CANCER
     Dosage: 427 MG, QD
     Route: 042
     Dates: start: 20060809
  2. CAPECITABINE [Suspect]
     Indication: COLORECTAL CANCER
     Dosage: 2000 MG, QD
     Route: 048
     Dates: start: 20060809
  3. OXALIPLATIN [Suspect]
     Indication: COLORECTAL CANCER
     Dosage: UNK, QD
     Route: 042
     Dates: start: 20060809
  4. CETUXIMAB [Suspect]
     Indication: COLORECTAL CANCER
     Dosage: 410 MG, QD
     Route: 042
     Dates: start: 20060809
  5. OMEPRAZOLE [Concomitant]
     Indication: DRUG USE FOR UNKNOWN INDICATION

REACTIONS (1)
  - MALLORY-WEISS SYNDROME [None]
